FAERS Safety Report 4988754-7 (Version None)
Quarter: 2006Q2

REPORT INFORMATION
  Report Type: 
  Country: None (occurrence: None)
  Receive Date: 20060502
  Receipt Date: 20050218
  Transmission Date: 20061013
  Serious: Yes (Hospitalization, Disabling, Other)
  Sender: FDA-Public Use
  Company Number: US-MERCK-0502USA02961

PATIENT
  Age: 58 Year
  Sex: Female
  Weight: 68 kg

DRUGS (1)
  1. VIOXX [Suspect]
     Indication: ARTHRITIS
     Route: 048
     Dates: start: 20000301, end: 20040901

REACTIONS (11)
  - ANXIETY [None]
  - CARDIAC DISORDER [None]
  - CHEST DISCOMFORT [None]
  - CHEST PAIN [None]
  - CORONARY ARTERY STENOSIS [None]
  - DEPRESSION [None]
  - DIABETES MELLITUS [None]
  - HYPERTENSION [None]
  - SHOULDER PAIN [None]
  - SILENT MYOCARDIAL INFARCTION [None]
  - SLEEP APNOEA SYNDROME [None]
